FAERS Safety Report 4591689-5 (Version None)
Quarter: 2005Q1

REPORT INFORMATION
  Report Type: 
  Country: None (occurrence: None)
  Receive Date: 20050225
  Receipt Date: 20050222
  Transmission Date: 20050727
  Serious: Yes (Death)
  Sender: FDA-Public Use
  Company Number: DE-ABBOTT-05P-062-0291621-00

PATIENT
  Sex: Male

DRUGS (5)
  1. RITONAVIR SOFT GELATIN CAPSULES [Suspect]
     Indication: HIV INFECTION
     Route: 048
     Dates: start: 20030923, end: 20050216
  2. TIPRANAVIR [Concomitant]
     Indication: HIV INFECTION
     Dates: start: 20030923, end: 20050216
  3. REPAGLINIDE [Concomitant]
     Indication: DIABETES MELLITUS NON-INSULIN-DEPENDENT
     Dates: start: 20000101, end: 20050216
  4. PRAVASTATIN SODIUM [Concomitant]
     Indication: HYPERCHOLESTEROLAEMIA
     Dates: start: 20040323, end: 20050216
  5. BACTRIM [Concomitant]
     Indication: INFECTION PROPHYLAXIS
     Dates: end: 20050216

REACTIONS (1)
  - DEATH [None]
